FAERS Safety Report 8276754-3 (Version None)
Quarter: 2012Q2

REPORT INFORMATION
  Report Type: 
  Country: None (occurrence: None)
  Receive Date: 20120412
  Receipt Date: 20120410
  Transmission Date: 20120825
  Serious: Yes (Life-Threatening, Hospitalization)
  Sender: FDA-Public Use
  Company Number: US-B.I. PHARMACEUTICALS,INC./RIDGEFIELD-2012-BP-02690BP

PATIENT
  Age: 89 Year
  Sex: Male

DRUGS (8)
  1. METOPROLOL TARTRATE [Concomitant]
     Indication: ATRIAL FIBRILLATION
  2. ALBUTEROL [Concomitant]
     Indication: CHRONIC OBSTRUCTIVE PULMONARY DISEASE
  3. LASIX [Concomitant]
     Indication: HYPERTENSION
  4. AMIODARONE HCL [Concomitant]
     Indication: ATRIAL FIBRILLATION
  5. BENAZEPRIL HYDROCHLORIDE [Concomitant]
     Indication: HYPERTENSION
  6. PRADAXA [Suspect]
     Indication: ATRIAL FIBRILLATION
     Dosage: 150 MG
     Route: 048
  7. METOPROLOL TARTRATE [Concomitant]
     Indication: HYPERTENSION
  8. PRILOSEC [Concomitant]
     Indication: GASTROOESOPHAGEAL REFLUX DISEASE

REACTIONS (2)
  - POST PROCEDURAL HAEMORRHAGE [None]
  - INTESTINAL PERFORATION [None]
